FAERS Safety Report 8824133 (Version 1)
Quarter: 2012Q4

REPORT INFORMATION
  Report Type: 
  Country: US (occurrence: US)
  Receive Date: 20121004
  Receipt Date: 20121004
  Transmission Date: 20130627
  Serious: No
  Sender: FDA-Public Use
  Company Number: US-BIOGENIDEC-2012BI039173

PATIENT
  Sex: Male

DRUGS (4)
  1. TYSABRI [Suspect]
     Indication: MULTIPLE SCLEROSIS
     Route: 042
     Dates: start: 20061208, end: 20070302
  2. FENTANYL PATCH [Concomitant]
     Indication: PAIN
  3. PERCOCET [Concomitant]
     Indication: BREAKTHROUGH PAIN
  4. UNKNOWN MEDICATION [Concomitant]
     Indication: FATIGUE

REACTIONS (2)
  - Multiple sclerosis relapse [Recovered/Resolved]
  - Multiple sclerosis [Recovered/Resolved]
